FAERS Safety Report 10197193 (Version 2)
Quarter: 2014Q2

REPORT INFORMATION
  Report Type: Spontaneous
  Country: US (occurrence: US)
  Receive Date: 20140527
  Receipt Date: 20140626
  Transmission Date: 20141212
  Serious: Yes (Hospitalization)
  Sender: FDA-Public Use
  Company Number: US-GLAXOSMITHKLINE-A1073774A

PATIENT
  Age: 70 Year
  Sex: Female

DRUGS (5)
  1. ADVAIR HFA [Suspect]
     Indication: ASTHMA
     Dosage: 1PUFF TWICE PER DAY
     Route: 055
     Dates: start: 20100511
  2. VENTOLIN [Suspect]
     Indication: ASTHMA
     Route: 055
     Dates: start: 20100504
  3. NORCO [Concomitant]
  4. NEBULIZER TREATMENT [Concomitant]
  5. SYMBICORT [Concomitant]

REACTIONS (3)
  - Intervertebral disc degeneration [Recovering/Resolving]
  - Surgery [Recovered/Resolved]
  - Surgery [Unknown]
